FAERS Safety Report 5266628-4 (Version None)
Quarter: 2007Q1

REPORT INFORMATION
  Report Type: 
  Country: None (occurrence: None)
  Receive Date: 20070312
  Receipt Date: 20070227
  Transmission Date: 20070707
  Serious: Yes (Hospitalization, Other)
  Sender: FDA-Public Use
  Company Number: 237363

PATIENT
  Age: 65 Year
  Sex: Male
  Weight: 56 kg

DRUGS (10)
  1. RITUXAN [Suspect]
     Indication: NON-HODGKIN'S LYMPHOMA
     Dosage: 375 MG, INTRAVENOUS
     Route: 042
     Dates: start: 20060904
  2. FLUDARABINE PHOSPHATE [Suspect]
     Indication: NON-HODGKIN'S LYMPHOMA
     Dosage: 40 MG, ORAL
     Route: 048
     Dates: start: 20060904
  3. BIOFERMIN (LACTOBACILLUS ACIDOPHILUS) [Concomitant]
  4. METHYLCOBAL (MECOBALAMIN) [Concomitant]
  5. RILMAZAFONE HYDROCHLORIDE (RILMAZAFONE HYDROCHLORIDE) [Concomitant]
  6. AMLODIPINE BESYLATE (AMLODIPINE BESYLATE) [Concomitant]
  7. SENNA LEAF (SENNA) [Concomitant]
  8. SUCRALFATE [Concomitant]
  9. ETIZOLAM (ETIZOLAM) [Concomitant]
  10. BAKTAR (SULFAMETHOXAZOLE, TRIMETHOPRIM) [Concomitant]

REACTIONS (5)
  - ABDOMINAL DISTENSION [None]
  - GASTRIC CANCER [None]
  - GASTRITIS EROSIVE [None]
  - IMMUNE SYSTEM DISORDER [None]
  - LYMPHOCYTE COUNT DECREASED [None]
